FAERS Safety Report 5975393-4 (Version None)
Quarter: 2008Q4

REPORT INFORMATION
  Report Type: 
  Country: None (occurrence: None)
  Receive Date: 20081202
  Receipt Date: 20080114
  Transmission Date: 20090506
  Serious: Yes (Hospitalization)
  Sender: FDA-Public Use
  Company Number: US-AMGEN-QUU259464

PATIENT
  Sex: Male

DRUGS (2)
  1. ENBREL [Suspect]
     Indication: PSORIASIS
     Route: 058
     Dates: start: 20050406
  2. UNKNOWN [Concomitant]
     Dates: start: 20071001

REACTIONS (4)
  - HAEMORRHAGIC DIATHESIS [None]
  - INJECTION SITE PAIN [None]
  - PANCREATITIS [None]
  - PSORIASIS [None]
